FAERS Safety Report 19854692 (Version 2)
Quarter: 2021Q4

REPORT INFORMATION
  Report Type: Report from Study
  Country: KR (occurrence: KR)
  Receive Date: 20210920
  Receipt Date: 20211206
  Transmission Date: 20220303
  Serious: Yes (Hospitalization)
  Sender: FDA-Public Use
  Company Number: KR-NOVARTISPH-NVSC2021KR211029

PATIENT
  Age: 53 Year
  Sex: Female
  Weight: 74 kg

DRUGS (36)
  1. RIBOCICLIB [Suspect]
     Active Substance: RIBOCICLIB
     Indication: Breast cancer metastatic
     Dosage: 600 MG
     Route: 048
     Dates: start: 20210608, end: 20210628
  2. FASLODEX [Concomitant]
     Active Substance: FULVESTRANT
     Indication: Breast cancer
     Dosage: 500 MG
     Route: 065
     Dates: start: 20210608, end: 20210608
  3. FASLODEX [Concomitant]
     Active Substance: FULVESTRANT
     Dosage: 500 MG
     Route: 065
     Dates: start: 20210622, end: 20210622
  4. XGEVA [Concomitant]
     Active Substance: DENOSUMAB
     Indication: Metastases to bone
     Dosage: 120 MG
     Route: 065
     Dates: start: 20210622, end: 20210622
  5. MAGO [Concomitant]
     Indication: Prophylaxis
     Dosage: 1500 MG
     Route: 065
     Dates: start: 20210622, end: 20210705
  6. MEGACE F [Concomitant]
     Indication: Prophylaxis
     Dosage: 10 ML (SUSP)
     Route: 065
     Dates: start: 20210608, end: 20210621
  7. MEGACE F [Concomitant]
     Dosage: 5 ML
     Route: 065
     Dates: start: 20210622, end: 20210705
  8. NORZYME [Concomitant]
     Indication: Prophylaxis
     Dosage: 1 DF
     Route: 065
     Dates: start: 20210608, end: 20210608
  9. NORZYME [Concomitant]
     Dosage: 3 DF
     Route: 065
     Dates: start: 20210622, end: 20210705
  10. NALOXONE HYDROCHLORIDE\OXYCODONE HYDROCHLORIDE [Concomitant]
     Active Substance: NALOXONE HYDROCHLORIDE\OXYCODONE HYDROCHLORIDE
     Indication: Prophylaxis
     Dosage: 1 DF
     Route: 065
     Dates: start: 20210622, end: 20210622
  11. NALOXONE HYDROCHLORIDE\OXYCODONE HYDROCHLORIDE [Concomitant]
     Active Substance: NALOXONE HYDROCHLORIDE\OXYCODONE HYDROCHLORIDE
     Indication: Headache
     Dosage: 2 DF
     Route: 065
     Dates: start: 20210622, end: 20210705
  12. NALOXONE HYDROCHLORIDE\OXYCODONE HYDROCHLORIDE [Concomitant]
     Active Substance: NALOXONE HYDROCHLORIDE\OXYCODONE HYDROCHLORIDE
     Dosage: 2 DF
     Route: 065
     Dates: start: 20210715, end: 20210727
  13. MUCOSTEN [Concomitant]
     Indication: Prophylaxis
     Dosage: 300 MG
     Route: 065
     Dates: start: 20210707, end: 20210707
  14. MUCOSTEN [Concomitant]
     Dosage: 600 MG
     Route: 065
     Dates: start: 20210708, end: 20210708
  15. MUCOSTEN [Concomitant]
     Dosage: 900 MG
     Route: 065
     Dates: start: 20210709, end: 20210710
  16. TAZOPERAN [Concomitant]
     Indication: Pneumonia
     Dosage: 18 G
     Route: 065
     Dates: start: 20210716, end: 20210730
  17. IPRATROPIUM BROMIDE [Concomitant]
     Active Substance: IPRATROPIUM BROMIDE
     Indication: Dyspnoea
     Dosage: 8 ML (SOLN) (STRENGTH: 500 MCG/2 ML)
     Route: 065
     Dates: start: 20210707, end: 20210730
  18. VENTOLIN [Concomitant]
     Active Substance: ALBUTEROL SULFATE
     Indication: Dyspnoea
     Dosage: 10 MG
     Route: 065
     Dates: start: 20210707, end: 20210730
  19. DEPAKOTE [Concomitant]
     Active Substance: DIVALPROEX SODIUM
     Indication: Neuropathy peripheral
     Dosage: 250 MG
     Route: 065
     Dates: start: 20210409, end: 20210730
  20. FENTORA [Concomitant]
     Active Substance: FENTANYL CITRATE
     Indication: Headache
     Dosage: 100 UG
     Route: 065
     Dates: start: 20210720, end: 20210730
  21. NEURONTIN [Concomitant]
     Active Substance: GABAPENTIN
     Indication: Neuropathy peripheral
     Dosage: 1600 MG
     Route: 065
     Dates: start: 20210408, end: 20210730
  22. MUTEN [Concomitant]
     Indication: Dyspnoea
     Dosage: 600 MG
     Route: 065
     Dates: start: 20210707, end: 20210726
  23. FENTANYL [Concomitant]
     Active Substance: FENTANYL
     Indication: Headache
     Dosage: 12 UG (D-TRANS PATCH 12MCG/H 5.25?)
     Route: 065
     Dates: start: 20210728, end: 20210730
  24. TROPHERINE [Concomitant]
     Indication: Prophylaxis
     Dosage: 1 EA
     Route: 065
     Dates: start: 20210715
  25. SODIUM CHLORIDE [Concomitant]
     Active Substance: SODIUM CHLORIDE
     Indication: Hyponatraemia
     Dosage: 20 ML
     Route: 065
     Dates: start: 20210715, end: 20210722
  26. MEPERIDINE [Concomitant]
     Active Substance: MEPERIDINE
     Indication: Prophylaxis
     Dosage: 25 MG
     Route: 065
     Dates: start: 20210706, end: 20210729
  27. HYDROCORTISONE [Concomitant]
     Active Substance: HYDROCORTISONE
     Indication: Hyponatraemia
     Dosage: 20 MG
     Route: 065
     Dates: start: 20210726, end: 20210727
  28. EPILENT [Concomitant]
     Indication: Neuropathy peripheral
     Dosage: 800 MG
     Route: 065
     Dates: start: 20210727, end: 20210729
  29. MANNITOL [Concomitant]
     Active Substance: MANNITOL
     Indication: Prophylaxis
     Dosage: 200 ML
     Route: 065
     Dates: start: 20210716, end: 20210729
  30. HYDROCORTISONE SODIUM SUCCINATE [Concomitant]
     Active Substance: HYDROCORTISONE SODIUM SUCCINATE
     Indication: Hyponatraemia
     Dosage: 150 MG
     Route: 065
     Dates: start: 20210727, end: 20210730
  31. CALCIUM GLUCONATE [Concomitant]
     Active Substance: CALCIUM GLUCONATE
     Indication: Hypocalcaemia
     Dosage: 20 ML
     Route: 065
     Dates: start: 20210726, end: 20210729
  32. PHOSTEN [Concomitant]
     Indication: Hypophosphataemia
     Dosage: 20 ML
     Route: 065
     Dates: start: 20210726, end: 20210729
  33. PLAKON [Concomitant]
     Indication: Prophylaxis
     Dosage: 3 MG
     Route: 065
     Dates: start: 20210706, end: 20210716
  34. KEROMIN [Concomitant]
     Indication: Headache
     Dosage: 15 MG
     Route: 065
     Dates: start: 20210708, end: 20210719
  35. KEROMIN [Concomitant]
     Indication: Pain
  36. DEXAMETHASONE [Concomitant]
     Active Substance: DEXAMETHASONE
     Indication: Prophylaxis
     Dosage: 10 MG
     Route: 065
     Dates: start: 20210716, end: 20210727

REACTIONS (1)
  - Pancytopenia [Recovered/Resolved with Sequelae]

NARRATIVE: CASE EVENT DATE: 20210706
